FAERS Safety Report 4285549-7 (Version None)
Quarter: 2004Q1

REPORT INFORMATION
  Report Type: 
  Country: None (occurrence: None)
  Receive Date: 20040204
  Receipt Date: 20040129
  Transmission Date: 20041129
  Serious: Yes (Death)
  Sender: FDA-Public Use
  Company Number: 04-01-0153

PATIENT
  Age: 61 Year
  Sex: Male

DRUGS (2)
  1. CLOZAPINE [Suspect]
     Indication: AGGRESSION
     Dosage: 25-100 MG QD ORAL
     Route: 048
     Dates: start: 20030801, end: 20031201
  2. CLOZAPINE [Suspect]
     Indication: PSYCHOTIC DISORDER
     Dosage: 25-100 MG QD ORAL
     Route: 048
     Dates: start: 20030801, end: 20031201

REACTIONS (1)
  - BACTERIAL INFECTION [None]
